FAERS Safety Report 5715696-1 (Version None)
Quarter: 2008Q2

REPORT INFORMATION
  Report Type: 
  Country: None (occurrence: None)
  Receive Date: 20080422
  Receipt Date: 20080409
  Transmission Date: 20081010
  Serious: Yes (Hospitalization, Other)
  Sender: FDA-Public Use
  Company Number: 2008SP006572

PATIENT
  Age: 13 Year
  Sex: Male

DRUGS (1)
  1. CORICIN HBP COUGH + COLD (CHLORPHENIRAMINE MALEATE / DEXTROMETHORPHAN [Suspect]
     Indication: INTENTIONAL DRUG MISUSE
     Dosage: 32 MG;ONCE;PO
     Route: 048
     Dates: start: 20080403, end: 20080403

REACTIONS (3)
  - INCORRECT DOSE ADMINISTERED [None]
  - INTENTIONAL DRUG MISUSE [None]
  - SELF-MEDICATION [None]
